FAERS Safety Report 11508933 (Version 1)
Quarter: 2015Q3

REPORT INFORMATION
  Report Type: Spontaneous
  Country: US (occurrence: US)
  Receive Date: 20150903
  Receipt Date: 20150903
  Transmission Date: 20151125
  Serious: No
  Sender: FDA-Public Use
  Company Number: US-ELI_LILLY_AND_COMPANY-US201001003745

PATIENT
  Age: 65 Year
  Sex: Female
  Weight: 104.31 kg

DRUGS (2)
  1. HUMALOG [Suspect]
     Active Substance: INSULIN LISPRO
  2. HUMALOG [Suspect]
     Active Substance: INSULIN LISPRO
     Indication: DIABETES MELLITUS
     Dosage: UNK, UNK
     Dates: start: 200910

REACTIONS (5)
  - Incorrect product storage [Unknown]
  - Wrong technique in product usage process [Not Recovered/Not Resolved]
  - Blood glucose increased [Not Recovered/Not Resolved]
  - Drug ineffective [Not Recovered/Not Resolved]
  - Drug dispensing error [Recovered/Resolved]

NARRATIVE: CASE EVENT DATE: 2009
